FAERS Safety Report 19200290 (Version 1)
Quarter: 2021Q2

REPORT INFORMATION
  Report Type: Report from Study
  Country: CN (occurrence: CN)
  Receive Date: 20210430
  Receipt Date: 20210430
  Transmission Date: 20210717
  Serious: Yes (Hospitalization)
  Sender: FDA-Public Use
  Company Number: CN-ROCHE-2815725

PATIENT
  Age: 65 Year
  Sex: Female
  Weight: 51 kg

DRUGS (15)
  1. BLINDED PYROTINIB MALEATE/PLACEBO [Suspect]
     Active Substance: PYROTINIB MALEATE
     Dosage: BY IVGTT
     Route: 048
     Dates: start: 20210105
  2. BLINDED PYROTINIB MALEATE/PLACEBO [Suspect]
     Active Substance: PYROTINIB MALEATE
     Dosage: BY IVGTT
     Route: 048
     Dates: start: 20210126
  3. DOCETAXEL. [Suspect]
     Active Substance: DOCETAXEL
     Dosage: BY IVGTT
     Route: 065
     Dates: start: 20210126
  4. EPIRUBICIN [Suspect]
     Active Substance: EPIRUBICIN
     Indication: CHEMOTHERAPY
     Dosage: IVGTT ON D1
     Route: 065
     Dates: start: 20210401
  5. TRASTUZUMAB. [Suspect]
     Active Substance: TRASTUZUMAB
     Indication: HER2 POSITIVE BREAST CANCER
     Dosage: BY IVGTT
     Route: 041
     Dates: start: 20201215
  6. DOCETAXEL. [Suspect]
     Active Substance: DOCETAXEL
     Dosage: BY IVGTT
     Route: 065
     Dates: start: 20210105
  7. BLINDED PYROTINIB MALEATE/PLACEBO [Suspect]
     Active Substance: PYROTINIB MALEATE
     Indication: HER2 POSITIVE BREAST CANCER
     Dosage: BY IVGTT
     Route: 048
     Dates: start: 20201215
  8. TRASTUZUMAB. [Suspect]
     Active Substance: TRASTUZUMAB
     Dosage: BY IVGTT
     Route: 041
     Dates: start: 20210126
  9. DOCETAXEL. [Suspect]
     Active Substance: DOCETAXEL
     Indication: HER2 POSITIVE BREAST CANCER
     Dosage: BY IVGTT
     Route: 065
     Dates: start: 20201215
  10. TRASTUZUMAB. [Suspect]
     Active Substance: TRASTUZUMAB
     Dosage: BY IVGTT
     Route: 041
     Dates: start: 20210105
  11. TRASTUZUMAB. [Suspect]
     Active Substance: TRASTUZUMAB
     Dosage: BY IVGTT
     Route: 041
     Dates: start: 20210219
  12. BLINDED PYROTINIB MALEATE/PLACEBO [Suspect]
     Active Substance: PYROTINIB MALEATE
     Dosage: BY IVGTT
     Route: 048
     Dates: start: 20210219
  13. FLUOROURACIL. [Suspect]
     Active Substance: FLUOROURACIL
     Indication: CHEMOTHERAPY
     Dosage: IVGTT ON D1
     Route: 065
     Dates: start: 20210401
  14. CYCLOPHOSPHAMIDE. [Suspect]
     Active Substance: CYCLOPHOSPHAMIDE
     Indication: CHEMOTHERAPY
     Dosage: IVGTT ON D1
     Route: 065
     Dates: start: 20210401
  15. DOCETAXEL. [Suspect]
     Active Substance: DOCETAXEL
     Dosage: BY IVGTT
     Route: 065
     Dates: start: 20210219

REACTIONS (1)
  - Myelosuppression [Not Recovered/Not Resolved]

NARRATIVE: CASE EVENT DATE: 20210407
